FAERS Safety Report 9115971 (Version 7)
Quarter: 2013Q3

REPORT INFORMATION
  Report Type: Report from Study
  Country: JP (occurrence: JP)
  Receive Date: 20130225
  Receipt Date: 20130903
  Transmission Date: 20140515
  Serious: Yes (Hospitalization, Other)
  Sender: FDA-Public Use
  Company Number: JP-B.I. PHARMACEUTICALS,INC./RIDGEFIELD-2012-BP-23086NB

PATIENT
  Age: 76 Year
  Sex: Male
  Weight: 51.3 kg

DRUGS (11)
  1. BI 1744 [Suspect]
     Indication: CHRONIC OBSTRUCTIVE PULMONARY DISEASE
     Dosage: 5 MCG
     Route: 055
     Dates: start: 20120409, end: 20120919
  2. BI 1744 [Suspect]
     Indication: CHRONIC OBSTRUCTIVE PULMONARY DISEASE
     Dosage: 5 MCG
     Route: 055
     Dates: start: 20120409, end: 20120919
  3. BONALON [Concomitant]
     Route: 048
     Dates: start: 20090421
  4. NORVASC OD [Concomitant]
     Dosage: 2.5 MG
     Route: 048
     Dates: start: 20100120
  5. MUCOSTA [Concomitant]
     Indication: GASTRITIS
     Dosage: 300 MG
     Route: 048
     Dates: start: 20120924
  6. GASTER D [Concomitant]
     Indication: GASTRITIS
     Dosage: 20 MG
     Route: 048
     Dates: start: 20120924
  7. SPIRIVA [Concomitant]
     Indication: CHRONIC OBSTRUCTIVE PULMONARY DISEASE
     Dosage: 18 MCG
     Route: 055
     Dates: start: 20120919
  8. PREDONINE [Concomitant]
     Indication: INTERSTITIAL LUNG DISEASE
     Dosage: 5 MG
     Route: 048
     Dates: start: 20120919
  9. RESPLEN [Concomitant]
     Indication: CHRONIC OBSTRUCTIVE PULMONARY DISEASE
     Dosage: 60 MG
     Route: 048
     Dates: start: 20130123
  10. LENDORMIN D [Concomitant]
     Indication: INSOMNIA
     Dosage: 0.25 MG
     Route: 048
     Dates: start: 20120919
  11. ADONA [Concomitant]
     Indication: HAEMOPTYSIS
     Dosage: 3 TIMES/1 DAY
     Route: 048
     Dates: start: 20130417

REACTIONS (3)
  - Interstitial lung disease [Not Recovered/Not Resolved]
  - Lung neoplasm malignant [Not Recovered/Not Resolved]
  - Sudden hearing loss [Recovered/Resolved]
